FAERS Safety Report 5278208-5 (Version None)
Quarter: 2007Q1

REPORT INFORMATION
  Report Type: 
  Country: None (occurrence: None)
  Receive Date: 20070328
  Receipt Date: 20070322
  Transmission Date: 20070707
  Serious: Yes (Hospitalization)
  Sender: FDA-Public Use
  Company Number: US-JNJFOC-20070303864

PATIENT
  Sex: Female

DRUGS (12)
  1. INFLIXIMAB [Suspect]
     Indication: RHEUMATOID ARTHRITIS
     Route: 042
  2. CITRACAL [Concomitant]
  3. TOPROL-XL [Concomitant]
  4. SYNTHROID [Concomitant]
  5. FOLIC ACID [Concomitant]
  6. LORTAB [Concomitant]
     Dosage: 4-5 TABS(7.5 MG) DAILY
     Route: 048
  7. SOMA [Concomitant]
     Dosage: 350 MG AS NEEDED
  8. MULITVITAMIN [Concomitant]
  9. RELAFEN [Concomitant]
  10. PREDNISONE [Concomitant]
  11. METHOTREXATE [Concomitant]
  12. LASIX [Concomitant]

REACTIONS (2)
  - DEHYDRATION [None]
  - RESPIRATORY DISORDER [None]
